FAERS Safety Report 8827715 (Version 1)
Quarter: 2012Q4

REPORT INFORMATION
  Report Type: 
  Country: IT (occurrence: IT)
  Receive Date: 20121005
  Receipt Date: 20121005
  Transmission Date: 20130627
  Serious: Yes (Death, Hospitalization, Other)
  Sender: FDA-Public Use
  Company Number: IT-JNJFOC-20120911963

PATIENT
  Age: 46 Year
  Sex: Male

DRUGS (2)
  1. INFLIXIMAB, RECOMBINANT [Suspect]
     Indication: CROHN^S DISEASE
     Dosage: therapy duration of 6 years
     Route: 042
  2. 6-MERCAPTOPURINE [Suspect]
     Indication: CROHN^S DISEASE
     Dosage: therapy duration of 6 years (dose reported as 1.5 mg/kg/die)

REACTIONS (6)
  - Precursor T-lymphoblastic lymphoma/leukaemia [Not Recovered/Not Resolved]
  - Pneumonia bacterial [Fatal]
  - Cardiac tamponade [Recovering/Resolving]
  - Pericardial effusion [Recovering/Resolving]
  - Pleural effusion [Recovering/Resolving]
  - Bile duct obstruction [Recovering/Resolving]
